FAERS Safety Report 6162530-4 (Version None)
Quarter: 2009Q2

REPORT INFORMATION
  Report Type: 
  Country: None (occurrence: None)
  Receive Date: 20090421
  Receipt Date: 20090413
  Transmission Date: 20091009
  Serious: Yes (Life-Threatening)
  Sender: FDA-Public Use
  Company Number: GB-PFIZER INC-2009196710

PATIENT

DRUGS (4)
  1. CHAMPIX [Suspect]
     Indication: SMOKING CESSATION THERAPY
     Dosage: UNK
     Route: 048
     Dates: start: 20090220, end: 20090314
  2. NORDETTE-28 [Concomitant]
     Dosage: UNK
  3. OTOMIZE [Concomitant]
     Dosage: UNK
  4. REVAXIS [Concomitant]
     Dosage: UNK

REACTIONS (3)
  - ACUTE PSYCHOSIS [None]
  - SELF-INJURIOUS IDEATION [None]
  - SUICIDAL IDEATION [None]
